FAERS Safety Report 9283578 (Version 1)
Quarter: 2013Q2

REPORT INFORMATION
  Report Type: Spontaneous
  Country: US (occurrence: US)
  Receive Date: 20130510
  Receipt Date: 20130510
  Transmission Date: 20140414
  Serious: No
  Sender: FDA-Public Use
  Company Number: US-BAYER-2013-057119

PATIENT
  Sex: 0

DRUGS (6)
  1. ALEVE CAPLET [Suspect]
     Dosage: UNK
  2. MIDOL EXTENDED RELIEF CAPLET [Suspect]
  3. TYLENOL [PARACETAMOL] [Concomitant]
  4. ADVIL [Concomitant]
  5. PAMPRIN [Concomitant]
  6. EXCEDRIN [CAFFEINE,PARACETAMOL] [Concomitant]

REACTIONS (3)
  - Drug ineffective [None]
  - Abdominal distension [None]
  - Fatigue [None]
